FAERS Safety Report 17535585 (Version 1)
Quarter: 2020Q1

REPORT INFORMATION
  Report Type: Report from Study
  Country: None (occurrence: US)
  Receive Date: 20200312
  Receipt Date: 20200312
  Transmission Date: 20200409
  Serious: Yes (Hospitalization, Other)
  Sender: FDA-Public Use
  Company Number: US-ABBVIE-20K-163-3306190-00

PATIENT
  Age: 80 Year
  Sex: Male

DRUGS (1)
  1. CREON [Suspect]
     Active Substance: PANCRELIPASE AMYLASE\PANCRELIPASE LIPASE\PANCRELIPASE PROTEASE
     Indication: PRODUCT USED FOR UNKNOWN INDICATION
     Route: 048

REACTIONS (12)
  - Pancreatic failure [Unknown]
  - Asthenia [Unknown]
  - Anorectal operation [Unknown]
  - Abscess drainage [Unknown]
  - Hospitalisation [Unknown]
  - Malignant neoplasm of ampulla of Vater [Unknown]
  - Abdominal pain [Unknown]
  - Pyrexia [Unknown]
  - Cardiac failure congestive [Unknown]
  - Hospitalisation [Unknown]
  - Intestinal obstruction [Unknown]
  - Retinal disorder [Unknown]

NARRATIVE: CASE EVENT DATE: 1996
